FAERS Safety Report 16038002 (Version 2)
Quarter: 2019Q2

REPORT INFORMATION
  Report Type: Report from Study
  Country: US (occurrence: US)
  Receive Date: 20190305
  Receipt Date: 20190402
  Transmission Date: 20190711
  Serious: Yes (Hospitalization)
  Sender: FDA-Public Use
  Company Number: US-ACTELION-A-US2019-187207

PATIENT
  Sex: Male

DRUGS (5)
  1. LETAIRIS [Concomitant]
     Active Substance: AMBRISENTAN
  2. TADALAFIL. [Concomitant]
     Active Substance: TADALAFIL
  3. UPTRAVI [Suspect]
     Active Substance: SELEXIPAG
     Indication: PULMONARY ARTERIAL HYPERTENSION
     Dosage: 400 MCG, BID
     Route: 048
  4. ELIQUIS [Concomitant]
     Active Substance: APIXABAN
  5. WARFARIN [Concomitant]
     Active Substance: WARFARIN

REACTIONS (2)
  - Unevaluable event [Unknown]
  - Hospitalisation [Unknown]
